FAERS Safety Report 7522480-5 (Version None)
Quarter: 2011Q2

REPORT INFORMATION
  Report Type: 
  Country: None (occurrence: None)
  Receive Date: 20110603
  Receipt Date: 20110519
  Transmission Date: 20111010
  Serious: Yes (Other)
  Sender: FDA-Public Use
  Company Number: BR-JNJFOC-20110509053

PATIENT
  Age: 57 Year
  Sex: Male
  Weight: 77 kg

DRUGS (7)
  1. METFORMIN HYDROCHLORIDE [Concomitant]
     Indication: DIABETES MELLITUS
     Route: 048
     Dates: start: 20100101
  2. MOTILIUM [Concomitant]
     Indication: CROHN'S DISEASE
     Route: 048
     Dates: start: 20110301
  3. REMICADE [Suspect]
     Indication: CROHN'S DISEASE
     Route: 042
     Dates: start: 20110408
  4. PRELONE [Concomitant]
     Indication: CROHN'S DISEASE
     Route: 048
     Dates: start: 20110301
  5. REMICADE [Suspect]
     Route: 042
     Dates: start: 20110420, end: 20110519
  6. DIAMICRON [Concomitant]
     Indication: DIABETES MELLITUS
     Route: 048
     Dates: start: 20100101
  7. MESALAMINE [Concomitant]
     Indication: CROHN'S DISEASE
     Route: 048
     Dates: start: 20110301

REACTIONS (1)
  - PULMONARY EMBOLISM [None]
